FAERS Safety Report 15895261 (Version 1)
Quarter: 2019Q1

REPORT INFORMATION
  Report Type: Spontaneous
  Country: PT (occurrence: PT)
  Receive Date: 20190131
  Receipt Date: 20190131
  Transmission Date: 20190417
  Serious: Yes (Hospitalization, Other)
  Sender: FDA-Public Use
  Company Number: PT-DRREDDYS-GER/POR/19/0107308

PATIENT
  Age: 43 Year
  Sex: Male

DRUGS (2)
  1. CLOPIDOGREL [Suspect]
     Active Substance: CLOPIDOGREL BISULFATE
     Indication: PLATELET AGGREGATION INHIBITION
  2. ACETYLSALICYLIC ACID [Suspect]
     Active Substance: ASPIRIN
     Indication: PLATELET AGGREGATION INHIBITION

REACTIONS (6)
  - Dysmetria [Unknown]
  - Hemiparesis [Unknown]
  - Facial paresis [Unknown]
  - Dysarthria [Unknown]
  - Respiratory failure [Recovering/Resolving]
  - Haemorrhage [Recovered/Resolved]
